FAERS Safety Report 4838350-7 (Version None)
Quarter: 2005Q4

REPORT INFORMATION
  Report Type: 
  Country: None (occurrence: None)
  Receive Date: 20051123
  Receipt Date: 20051108
  Transmission Date: 20060501
  Serious: Yes (Other)
  Sender: FDA-Public Use
  Company Number: 2005PV004058

PATIENT
  Age: 62 Year
  Sex: Male

DRUGS (1)
  1. BYETTA [Suspect]
     Dosage: 5 MCG;SC
     Route: 058
     Dates: start: 20050101, end: 20050101

REACTIONS (1)
  - PANCREATITIS [None]
